FAERS Safety Report 7789926-9 (Version None)
Quarter: 2011Q3

REPORT INFORMATION
  Report Type: 
  Country: None (occurrence: None)
  Receive Date: 20110930
  Receipt Date: 20110107
  Transmission Date: 20111222
  Serious: No
  Sender: FDA-Public Use
  Company Number: US-ASTRAZENECA-2010SE14534

PATIENT
  Age: 82 Year
  Sex: Female
  Weight: 53.5 kg

DRUGS (2)
  1. ARIMIDEX [Suspect]
     Indication: BREAST CANCER
     Route: 048
     Dates: start: 20070101
  2. BLOOD PRESSURE MEDICINE [Concomitant]

REACTIONS (4)
  - DIARRHOEA [None]
  - ANXIETY [None]
  - DEPRESSION [None]
  - ALOPECIA [None]
